FAERS Safety Report 9397479 (Version 1)
Quarter: 2013Q3

REPORT INFORMATION
  Report Type: Spontaneous
  Country: US (occurrence: None)
  Receive Date: 20130711
  Receipt Date: 20130711
  Transmission Date: 20140515
  Serious: Yes (Life-Threatening)
  Sender: FDA-Public Use
  Company Number: None

PATIENT
  Age: 42 Year
  Sex: Female

DRUGS (1)
  1. ENBREL 50MG [Suspect]
     Dosage: 50MG  ONCE WEEKLY SUBQ
     Route: 058

REACTIONS (2)
  - Mycobacterium tuberculosis complex test positive [None]
  - Treatment noncompliance [None]
